FAERS Safety Report 16479172 (Version 2)
Quarter: 2020Q3

REPORT INFORMATION
  Report Type: Spontaneous
  Country: US (occurrence: US)
  Receive Date: 20190626
  Receipt Date: 20200710
  Transmission Date: 20201102
  Serious: Yes (Hospitalization)
  Sender: FDA-Public Use
  Company Number: US-SAOL THERAPEUTICS-2019SAO00071

PATIENT
  Age: 37 Year
  Sex: Male

DRUGS (1)
  1. LIORESAL [Suspect]
     Active Substance: BACLOFEN
     Dosage: 265 ?G, \DAY
     Route: 037

REACTIONS (1)
  - Wound dehiscence [Recovered/Resolved]

NARRATIVE: CASE EVENT DATE: 20190227
